FAERS Safety Report 18657287 (Version 5)
Quarter: 2021Q4

REPORT INFORMATION
  Report Type: Spontaneous
  Country: JP (occurrence: JP)
  Receive Date: 20201224
  Receipt Date: 20211014
  Transmission Date: 20220303
  Serious: Yes (Death)
  Sender: FDA-Public Use
  Company Number: JP-002147023-NVSJ2020JP013950

PATIENT
  Sex: Female

DRUGS (11)
  1. XOLAIR [Suspect]
     Active Substance: OMALIZUMAB
     Indication: Chronic spontaneous urticaria
     Route: 058
     Dates: start: 2017
  2. XOLAIR [Suspect]
     Active Substance: OMALIZUMAB
     Route: 058
     Dates: start: 2019
  3. LEVOCETIRIZINE [Concomitant]
     Active Substance: LEVOCETIRIZINE
     Indication: Chronic spontaneous urticaria
     Dosage: UNK
     Route: 065
  4. MONTELUKAST SODIUM [Concomitant]
     Active Substance: MONTELUKAST SODIUM
     Indication: Chronic spontaneous urticaria
     Dosage: UNK
     Route: 048
  5. BEPOTASTINE BESYLATE [Concomitant]
     Active Substance: BEPOTASTINE BESYLATE
     Indication: Chronic spontaneous urticaria
     Dosage: UNK
     Route: 065
  6. PACLITAXEL [Concomitant]
     Active Substance: PACLITAXEL
     Indication: Ovarian cancer
     Dosage: UNK
     Route: 042
     Dates: start: 2017
  7. CARBOPLATIN [Concomitant]
     Active Substance: CARBOPLATIN
     Indication: Ovarian cancer
     Route: 042
     Dates: start: 2017
  8. AVASTIN [Concomitant]
     Active Substance: BEVACIZUMAB
     Indication: Ovarian cancer
     Dosage: UNK
     Route: 042
     Dates: start: 2017
  9. GEMCITABINE [Concomitant]
     Active Substance: GEMCITABINE
     Indication: Ovarian cancer
     Route: 042
  10. BILASTINE [Concomitant]
     Active Substance: BILASTINE
     Indication: Chronic spontaneous urticaria
     Route: 048
  11. OLAPARIB [Concomitant]
     Active Substance: OLAPARIB
     Indication: Ovarian cancer
     Route: 065

REACTIONS (2)
  - Metastasis [Fatal]
  - Ovarian cancer recurrent [Fatal]

NARRATIVE: CASE EVENT DATE: 20170101
